FAERS Safety Report 7145572-1 (Version None)
Quarter: 2010Q4

REPORT INFORMATION
  Report Type: 
  Country: None (occurrence: None)
  Receive Date: 20101208
  Receipt Date: 20101130
  Transmission Date: 20110411
  Serious: Yes (Death, Life-Threatening, Other)
  Sender: FDA-Public Use
  Company Number: NL-GENZYME-CLOF-1001286

PATIENT
  Sex: Female

DRUGS (9)
  1. EVOLTRA [Suspect]
     Indication: ACUTE MYELOID LEUKAEMIA
     Dosage: 28.5 MG, QDX5
     Route: 042
     Dates: start: 20100928, end: 20101002
  2. CYTARABINE [Suspect]
     Indication: ACUTE MYELOID LEUKAEMIA
     Dosage: 380 MG, QD
     Route: 042
     Dates: start: 20100928, end: 20101001
  3. IDARUBICIN HCL [Suspect]
     Indication: ACUTE MYELOID LEUKAEMIA
     Dosage: 23 MG, QD
     Dates: start: 20100928, end: 20100930
  4. BROXIL [Concomitant]
     Indication: PROPHYLAXIS
     Dosage: 1000 MG, UNK
     Route: 048
     Dates: start: 20101003, end: 20101010
  5. ESOMEPRAZOLE [Concomitant]
     Indication: PROPHYLAXIS
     Dosage: 40 MG, UNK
     Route: 048
     Dates: start: 20101008, end: 20101010
  6. ESOMEPRAZOLE [Concomitant]
     Dosage: 40 MG, UNK
     Route: 048
     Dates: start: 20101018, end: 20101028
  7. IMIPENEM [Concomitant]
     Indication: INFECTION
     Dosage: 2000 MG, UNK
     Route: 042
     Dates: start: 20101012, end: 20101028
  8. VORICONAZOLE [Concomitant]
     Indication: INFECTION
     Dosage: 200 MG, UNK
     Route: 048
     Dates: start: 20101021, end: 20101021
  9. VORICONAZOLE [Concomitant]
     Dosage: 400 MG, UNK
     Route: 048
     Dates: start: 20101022, end: 20101028

REACTIONS (4)
  - DYSPNOEA [None]
  - LUNG INFECTION [None]
  - RESPIRATORY FAILURE [None]
  - SEPSIS [None]
